FAERS Safety Report 5679649-4 (Version None)
Quarter: 2008Q1

REPORT INFORMATION
  Report Type: 
  Country: None (occurrence: None)
  Receive Date: 20080325
  Receipt Date: 20080311
  Transmission Date: 20080703
  Serious: Yes (Hospitalization, Other)
  Sender: FDA-Public Use
  Company Number: BR-ABBOTT-07P-020-0369528-00

PATIENT
  Sex: Female
  Weight: 67 kg

DRUGS (8)
  1. SYNTHROID [Suspect]
     Indication: HYPOTHYROIDISM
     Route: 048
     Dates: start: 20051101
  2. SYNTHROID [Suspect]
     Route: 048
     Dates: start: 20060701
  3. SYNTHROID [Suspect]
     Dates: start: 20070201
  4. SYNTHROID [Suspect]
  5. UNKNOWN MAGISTRAL FORMULA [Concomitant]
     Indication: WEIGHT DECREASED
     Route: 048
     Dates: end: 20070513
  6. MEFENAMIC ACID [Concomitant]
     Indication: DYSMENORRHOEA
     Route: 048
  7. UNKNOWN MEDICATION [Concomitant]
     Indication: BLOOD CHOLESTEROL INCREASED
     Route: 048
     Dates: end: 20070513
  8. NEXT DAY PILL [Concomitant]
     Indication: CONTRACEPTION
     Route: 048
     Dates: start: 20070423, end: 20070423

REACTIONS (12)
  - ABDOMINAL PAIN [None]
  - AGGRESSION [None]
  - CARDIAC DISORDER [None]
  - HAEMORRHAGE [None]
  - HEADACHE [None]
  - HEPATIC NEOPLASM [None]
  - HYPOTENSION [None]
  - INFECTION [None]
  - INSOMNIA [None]
  - MENORRHAGIA [None]
  - PAIN [None]
  - PREMATURE SEPARATION OF PLACENTA [None]
